FAERS Safety Report 5910513-9 (Version None)
Quarter: 2008Q4

REPORT INFORMATION
  Report Type: 
  Country: None (occurrence: None)
  Receive Date: 20081007
  Receipt Date: 20080213
  Transmission Date: 20090506
  Serious: No
  Sender: FDA-Public Use
  Company Number: US-ASTRAZENECA-2008UW03063

PATIENT
  Age: 58 Year
  Sex: Female
  Weight: 66.2 kg

DRUGS (3)
  1. ARIMIDEX [Suspect]
     Indication: BREAST CANCER
  2. LIPITOR [Concomitant]
  3. TOPROL-XL [Concomitant]

REACTIONS (2)
  - BONE PAIN [None]
  - URINE ODOUR ABNORMAL [None]
